FAERS Safety Report 24421317 (Version 1)
Quarter: 2024Q4

REPORT INFORMATION
  Report Type: Spontaneous
  Country: ES (occurrence: ES)
  Receive Date: 20241010
  Receipt Date: 20241010
  Transmission Date: 20250115
  Serious: Yes (Other)
  Sender: AMGEN
  Company Number: ES-AMGEN-ESPSP2024195959

PATIENT
  Age: 38 Year
  Sex: Female

DRUGS (8)
  1. FILGRASTIM [Suspect]
     Active Substance: FILGRASTIM
     Indication: Acute myeloid leukaemia
     Dosage: 300 MICROGRAM, QD (DAYS 1-5)
     Route: 058
  2. HYDROXYUREA [Concomitant]
     Active Substance: HYDROXYUREA
  3. CYTARABINE [Concomitant]
     Active Substance: CYTARABINE
     Dosage: 200 MILLIGRAM PER MILLILITRE, (ON DAYS 1-7)
     Route: 042
  4. CYTARABINE [Concomitant]
     Active Substance: CYTARABINE
     Dosage: 2 GRAM PER MILLILITRE (ON DAYS 1-5)
     Route: 042
  5. IDARUBICIN [Concomitant]
     Active Substance: IDARUBICIN
     Dosage: 12 MILLIGRAM PER MILLILITRE, QD (ON DAYS 1-3, AND DAYS 1 3, AND 5)
     Route: 042
  6. FLUDARABINE [Concomitant]
     Active Substance: FLUDARABINE PHOSPHATE
     Dosage: 30 MILLIGRAM PER MILLILITRE (DAYS 1-5)
     Route: 042
  7. GILTERITINIB [Concomitant]
     Active Substance: GILTERITINIB
     Dosage: 120 MILLIGRAM, QD
  8. GILTERITINIB [Concomitant]
     Active Substance: GILTERITINIB
     Dosage: 80 MILLIGRAM, QD

REACTIONS (6)
  - Neutropenia [Unknown]
  - Cell death [Unknown]
  - Cholestasis [Unknown]
  - Acute myeloid leukaemia recurrent [Unknown]
  - Granuloma annulare [Unknown]
  - Neutrophilic dermatosis [Unknown]
